FAERS Safety Report 20704258 (Version 1)
Quarter: 2022Q2

REPORT INFORMATION
  Report Type: Spontaneous
  Country: US (occurrence: None)
  Receive Date: 20220412
  Receipt Date: 20220412
  Transmission Date: 20220721
  Serious: No
  Sender: FDA-Public Use
  Company Number: None

PATIENT
  Age: 44 Year
  Sex: Male
  Weight: 83.91 kg

DRUGS (2)
  1. BUPRENORPHINE [Suspect]
     Active Substance: BUPRENORPHINE
     Dosage: OTHER FREQUENCY : 1-3 TIMES DAILY ??PATIENT TRIED FOR OVER SIX MONTHS , SWITCHED TO MONO BUPRENORPHI
     Dates: start: 2017, end: 2018
  2. NALOXONE [Suspect]
     Active Substance: NALOXONE

REACTIONS (12)
  - Headache [None]
  - Palpitations [None]
  - Feeling jittery [None]
  - Formication [None]
  - Insomnia [None]
  - Gastrooesophageal reflux disease [None]
  - Dyspepsia [None]
  - Tinnitus [None]
  - Peripheral swelling [None]
  - Pruritus [None]
  - Dyspepsia [None]
  - Product substitution issue [None]
